FAERS Safety Report 11473354 (Version 1)
Quarter: 2015Q3

REPORT INFORMATION
  Report Type: Spontaneous
  Country: US (occurrence: US)
  Receive Date: 20150908
  Receipt Date: 20150908
  Transmission Date: 20151125
  Serious: No
  Sender: FDA-Public Use
  Company Number: US-AMEDRA PHARMACEUTICALS LLC-2014AMD00033

PATIENT
  Age: 65 Year
  Sex: Female
  Weight: 74.38 kg

DRUGS (3)
  1. EPINEPHRINE. [Suspect]
     Active Substance: EPINEPHRINE
     Indication: URTICARIA
     Dosage: 0.30 MG, ONCE
     Route: 030
     Dates: start: 20140630, end: 20140630
  2. 12 UNSPECIFIED MEDICATIONS [Concomitant]
  3. EPINEPHRINE. [Suspect]
     Active Substance: EPINEPHRINE
     Indication: URTICARIA
     Dosage: 0.3 MG, ONCE
     Route: 030
     Dates: start: 20140630, end: 20140630

REACTIONS (1)
  - Drug ineffective [Recovered/Resolved]

NARRATIVE: CASE EVENT DATE: 20140630
